FAERS Safety Report 23337385 (Version 1)
Quarter: 2023Q4

REPORT INFORMATION
  Report Type: Spontaneous
  Country: US (occurrence: US)
  Receive Date: 20231226
  Receipt Date: 20231226
  Transmission Date: 20240110
  Serious: Yes (Hospitalization, Other)
  Sender: FDA-Public Use
  Company Number: US-SA-SAC20231223000427

PATIENT
  Age: 22 Year
  Sex: Female

DRUGS (2)
  1. DUPIXENT [Suspect]
     Active Substance: DUPILUMAB
     Indication: Illness
     Route: 058
     Dates: start: 202207
  2. VALACYCLOVIR [Concomitant]
     Active Substance: VALACYCLOVIR HYDROCHLORIDE
     Dosage: UNK, QD

REACTIONS (14)
  - Staphylococcal infection [Unknown]
  - Systemic infection [Unknown]
  - Herpes simplex [Unknown]
  - Rash pruritic [Unknown]
  - Dry skin [Unknown]
  - Stress [Unknown]
  - Skin erosion [Unknown]
  - Skin discolouration [Unknown]
  - Skin exfoliation [Unknown]
  - Eyelids pruritus [Unknown]
  - Pruritus [Unknown]
  - Oral herpes [Unknown]
  - Rash [Unknown]
  - Therapeutic response shortened [Unknown]

NARRATIVE: CASE EVENT DATE: 20231220
